FAERS Safety Report 8444707 (Version 2)
Quarter: 2015Q1

REPORT INFORMATION
  Report Type: Spontaneous
  Country: US (occurrence: US)
  Receive Date: 20120307
  Receipt Date: 20150214
  Transmission Date: 20150721
  Serious: No
  Sender: FDA-Public Use
  Company Number: US-GLAXOSMITHKLINE-A0945628A

PATIENT

DRUGS (6)
  1. LISINOPRIL. [Concomitant]
     Active Substance: LISINOPRIL
  2. ACETAMINOPHEN. [Concomitant]
     Active Substance: ACETAMINOPHEN
  3. REQUIP [Suspect]
     Active Substance: ROPINIROLE HYDROCHLORIDE
     Indication: PARKINSON^S DISEASE
     Dosage: 1 MG
     Route: 048
     Dates: start: 20090226
  4. FUROSEMIDE. [Concomitant]
     Active Substance: FUROSEMIDE
  5. REQUIP [Suspect]
     Active Substance: ROPINIROLE HYDROCHLORIDE
     Indication: RESTLESS LEGS SYNDROME
  6. RANITIDINE [Concomitant]
     Active Substance: RANITIDINE\RANITIDINE HYDROCHLORIDE

REACTIONS (14)
  - Dry mouth [Unknown]
  - Feeling abnormal [Not Recovered/Not Resolved]
  - Tremor [Unknown]
  - Feeling jittery [Unknown]
  - Oropharyngeal pain [Unknown]
  - Initial insomnia [Unknown]
  - Musculoskeletal disorder [Unknown]
  - Frustration [Not Recovered/Not Resolved]
  - Dizziness [Not Recovered/Not Resolved]
  - Hyperhidrosis [Unknown]
  - Labyrinthitis [Unknown]
  - Nervousness [Unknown]
  - Balance disorder [Not Recovered/Not Resolved]
  - Therapeutic response unexpected [Unknown]

NARRATIVE: CASE EVENT DATE: 201105
